FAERS Safety Report 7606460-7 (Version None)
Quarter: 2011Q3

REPORT INFORMATION
  Report Type: 
  Country: None (occurrence: None)
  Receive Date: 20110712
  Receipt Date: 20110712
  Transmission Date: 20111222
  Serious: No
  Sender: FDA-Public Use
  Company Number: None

PATIENT
  Sex: Female
  Weight: 74.8435 kg

DRUGS (2)
  1. CEPHALEXIN [Suspect]
     Indication: ANTIBIOTIC THERAPY
     Dosage: 500MG 4 TIMES A DAY FOR 7 DAYS
     Dates: start: 20100401
  2. CEPHALEXIN [Suspect]
     Indication: LIMB INJURY
     Dosage: 500MG 4 TIMES A DAY FOR 7 DAYS
     Dates: start: 20100401

REACTIONS (2)
  - DRUG HYPERSENSITIVITY [None]
  - RASH [None]
